FAERS Safety Report 5171188-2 (Version None)
Quarter: 2006Q4

REPORT INFORMATION
  Report Type: 
  Country: None (occurrence: None)
  Receive Date: 20061213
  Receipt Date: 20060518
  Transmission Date: 20070319
  Serious: Yes (Hospitalization)
  Sender: FDA-Public Use
  Company Number: US-AMGEN-KDL180180

PATIENT
  Sex: Female

DRUGS (20)
  1. ENBREL [Suspect]
     Indication: PSORIASIS
     Route: 058
     Dates: end: 20060101
  2. AVAPRO [Concomitant]
     Route: 048
     Dates: start: 20050808
  3. LIPITOR [Concomitant]
     Route: 048
     Dates: start: 20051031
  4. METFORMIN HYDROCHLORIDE [Concomitant]
     Route: 048
     Dates: start: 20051031
  5. FUROSEMIDE [Concomitant]
     Dates: start: 20050808
  6. COREG [Concomitant]
     Dates: start: 20050808
  7. DIGITEK [Concomitant]
     Route: 048
     Dates: start: 20050808
  8. SPIRONOLACTONE [Concomitant]
     Route: 048
     Dates: start: 20050808
  9. SYNTHROID [Concomitant]
     Route: 048
  10. NORVASC [Concomitant]
     Route: 048
     Dates: start: 20051011
  11. FOSAMAX [Concomitant]
     Route: 048
     Dates: start: 20051024
  12. ICAPS [Concomitant]
     Dates: start: 20050808
  13. CYANOCOBALAMIN [Concomitant]
     Dates: start: 20060111
  14. HYDROCHLOROTHIAZIDE [Concomitant]
     Route: 048
     Dates: start: 20050926
  15. CLOBETASOL PROPIONATE [Concomitant]
     Dates: start: 20051108
  16. FERROUS SULFATE TAB [Concomitant]
     Route: 048
  17. ANASTROZOLE [Concomitant]
     Route: 048
  18. CLOBETASOL PROPIONATE [Concomitant]
  19. VITAMIN B-12 [Concomitant]
     Route: 042
     Dates: start: 20051103
  20. HUMALOG [Concomitant]

REACTIONS (1)
  - BREAST CANCER IN SITU [None]
